FAERS Safety Report 4300920-2 (Version None)
Quarter: 2004Q1

REPORT INFORMATION
  Report Type: 
  Country: None (occurrence: None)
  Receive Date: 20040220
  Receipt Date: 20040213
  Transmission Date: 20041129
  Serious: Yes (Hospitalization, Disabling)
  Sender: FDA-Public Use
  Company Number: WAES 0402DNK00025

PATIENT
  Age: 67 Year
  Sex: Male
  Weight: 105 kg

DRUGS (3)
  1. VIOXX [Suspect]
     Indication: OSTEOARTHRITIS
     Route: 048
     Dates: start: 20020206, end: 20020208
  2. VIOXX [Suspect]
     Indication: ARTHRALGIA
     Route: 048
     Dates: start: 20020206, end: 20020208
  3. TELMISARTAN [Concomitant]
     Route: 048

REACTIONS (1)
  - CEREBRAL INFARCTION [None]
